FAERS Safety Report 18312076 (Version 1)
Quarter: 2020Q3

REPORT INFORMATION
  Report Type: Spontaneous
  Country: US (occurrence: US)
  Receive Date: 20200925
  Receipt Date: 20200925
  Transmission Date: 20201103
  Serious: No
  Sender: FDA-Public Use
  Company Number: None

PATIENT
  Age: 52 Year
  Sex: Female
  Weight: 55.35 kg

DRUGS (1)
  1. DESVENLAFAXINE SUCC ER 50 MGS [Suspect]
     Active Substance: DESVENLAFAXINE SUCCINATE
     Indication: POSTMENOPAUSE
     Dosage: ?          QUANTITY:1 TABLET(S);?

REACTIONS (4)
  - Vomiting [None]
  - Dyspepsia [None]
  - Therapy interrupted [None]
  - Gastrooesophageal reflux disease [None]

NARRATIVE: CASE EVENT DATE: 20200402
